FAERS Safety Report 7727243-3 (Version None)
Quarter: 2011Q3

REPORT INFORMATION
  Report Type: 
  Country: None (occurrence: None)
  Receive Date: 20110902
  Receipt Date: 20110819
  Transmission Date: 20111222
  Serious: Yes (Hospitalization, Other)
  Sender: FDA-Public Use
  Company Number: DE-GENENTECH-322476

PATIENT
  Sex: Male

DRUGS (8)
  1. ISONIAZID [Suspect]
     Indication: TUBERCULOSIS
     Dosage: UNK
     Route: 065
     Dates: start: 20080101, end: 20080101
  2. PYRAZINAMIDE [Suspect]
     Indication: TUBERCULOSIS
     Dosage: UNK
     Route: 065
     Dates: start: 20080101, end: 20080101
  3. PREDNISOLONE [Concomitant]
     Indication: RHEUMATOID ARTHRITIS
     Dosage: 20 MG, UNK
     Route: 048
  4. MABTHERA [Suspect]
     Indication: RHEUMATOID ARTHRITIS
     Dosage: UNK
     Route: 042
     Dates: start: 20100201
  5. ETHAMBUTOL HYDROCHLORIDE [Suspect]
     Indication: TUBERCULOSIS
     Dosage: UNK
     Dates: start: 20080101, end: 20080101
  6. OMEPRAZOLE [Concomitant]
     Indication: GASTRITIS
     Dosage: 20 MG, QD
     Route: 048
  7. IBU [Concomitant]
     Indication: PAIN
     Dosage: 800 MG, UNK
     Route: 048
  8. RIFAMPICIN [Suspect]
     Indication: TUBERCULOSIS
     Dosage: UNK
     Route: 065
     Dates: start: 20080101, end: 20080101

REACTIONS (3)
  - FACTOR V DEFICIENCY [None]
  - HEPATIC CIRRHOSIS [None]
  - TYPE 2 DIABETES MELLITUS [None]
